FAERS Safety Report 6633832-X (Version None)
Quarter: 2010Q1

REPORT INFORMATION
  Report Type: 
  Country: None (occurrence: None)
  Receive Date: 20100315
  Receipt Date: 20100302
  Transmission Date: 20100710
  Serious: Yes (Hospitalization)
  Sender: FDA-Public Use
  Company Number: AU-ELI_LILLY_AND_COMPANY-AU201003001067

PATIENT
  Sex: Male
  Weight: 57.7 kg

DRUGS (1)
  1. GEMCITABINE HCL [Suspect]
     Indication: PANCREATIC CARCINOMA
     Dosage: 1000 MG, UNKNOWN
     Route: 065
     Dates: start: 20100219

REACTIONS (2)
  - DECREASED APPETITE [None]
  - DEHYDRATION [None]
